FAERS Safety Report 22235147 (Version 1)
Quarter: 2023Q2

REPORT INFORMATION
  Report Type: Spontaneous
  Country: JP (occurrence: JP)
  Receive Date: 20230420
  Receipt Date: 20230420
  Transmission Date: 20230722
  Serious: Yes (Other)
  Sender: FDA-Public Use
  Company Number: JP-PFIZER INC-PV202300070172

PATIENT
  Age: 73 Year
  Sex: Male

DRUGS (6)
  1. METHOTREXATE SODIUM [Suspect]
     Active Substance: METHOTREXATE SODIUM
     Indication: Rheumatoid arthritis
     Dosage: UNK
  2. MIZORIBINE [Concomitant]
     Active Substance: MIZORIBINE
  3. SULFASALAZINE [Concomitant]
     Active Substance: SULFASALAZINE
  4. BUCILLAMINE [Concomitant]
     Active Substance: BUCILLAMINE
  5. PREDNISOLONE [Concomitant]
     Active Substance: PREDNISOLONE
  6. ADALIMUMAB [Concomitant]
     Active Substance: ADALIMUMAB

REACTIONS (1)
  - Diffuse large B-cell lymphoma [Recovering/Resolving]
